FAERS Safety Report 18395011 (Version 3)
Quarter: 2020Q4

REPORT INFORMATION
  Report Type: Report from Study
  Country: US (occurrence: US)
  Receive Date: 20201016
  Receipt Date: 20201103
  Transmission Date: 20210114
  Serious: Yes (Death, Life-Threatening, Hospitalization, Other)
  Sender: FDA-Public Use
  Company Number: US-GILEAD-2018-0344652

PATIENT
  Age: 56 Year
  Sex: Male
  Weight: 80.7 kg

DRUGS (10)
  1. LASIX [Concomitant]
     Active Substance: FUROSEMIDE
     Indication: POLYURIA
     Route: 042
  2. KEPPRA [Concomitant]
     Active Substance: LEVETIRACETAM
     Indication: PRODUCT USED FOR UNKNOWN INDICATION
  3. VANCOMYCIN [Concomitant]
     Active Substance: VANCOMYCIN
     Indication: ANTIBIOTIC PROPHYLAXIS
     Route: 042
  4. OXYGEN. [Concomitant]
     Active Substance: OXYGEN
  5. FLUDARABINE [Suspect]
     Active Substance: FLUDARABINE PHOSPHATE
     Indication: CHEMOTHERAPY
     Dosage: 30 MG/M2, QD DAYS 1-2
     Route: 042
     Dates: start: 20180119, end: 20180124
  6. CEFEPIME [Concomitant]
     Active Substance: CEFEPIME HYDROCHLORIDE
     Indication: ANTIBIOTIC PROPHYLAXIS
     Route: 042
  7. CYTARABINE. [Suspect]
     Active Substance: CYTARABINE
     Indication: CHEMOTHERAPY
     Dosage: 2 G/M2, QD DAYS 1-2
     Route: 042
     Dates: start: 20180119, end: 20180124
  8. KTE-X19 [Suspect]
     Active Substance: AXICABTAGENE CILOLEUCEL
     Indication: ACUTE LYMPHOCYTIC LEUKAEMIA
     Dosage: 0.5 X 10^6 CELLS/KG, 40 ML, SINGLE
     Route: 042
     Dates: start: 20180219, end: 20180219
  9. CYCLOPHOSPHAMIDE. [Suspect]
     Active Substance: CYCLOPHOSPHAMIDE
     Indication: CHEMOTHERAPY
     Dosage: 1840 MG, SINGLE, ONCE OVER 60 MINUTES
     Route: 042
     Dates: start: 20180217, end: 20180217
  10. FLUDARABINE [Suspect]
     Active Substance: FLUDARABINE PHOSPHATE
     Indication: CHEMOTHERAPY
     Dosage: 50 MG, EVERY 22 HOURS OVER 30 MINUTES
     Route: 042
     Dates: start: 20180215, end: 20180217

REACTIONS (11)
  - Platelet count decreased [Not Recovered/Not Resolved]
  - Febrile neutropenia [Recovered/Resolved]
  - Hypotension [Not Recovered/Not Resolved]
  - Bacteraemia [Recovered/Resolved]
  - Hypoxia [Not Recovered/Not Resolved]
  - Pleural effusion [Not Recovered/Not Resolved]
  - Cerebrovascular accident [Fatal]
  - Viral upper respiratory tract infection [Recovered/Resolved]
  - Respiratory failure [Not Recovered/Not Resolved]
  - Cytokine release syndrome [Not Recovered/Not Resolved]
  - Encephalopathy [Not Recovered/Not Resolved]

NARRATIVE: CASE EVENT DATE: 20180221
